FAERS Safety Report 19432636 (Version 10)
Quarter: 2022Q4

REPORT INFORMATION
  Report Type: Report from Study
  Country: GB (occurrence: GB)
  Receive Date: 20210617
  Receipt Date: 20221012
  Transmission Date: 20230113
  Serious: Yes (Hospitalization, Other)
  Sender: FDA-Public Use
  Company Number: GB-ROCHE-1621948

PATIENT
  Age: 57 Year
  Sex: Female

DRUGS (105)
  1. EXEMESTANE [Suspect]
     Active Substance: EXEMESTANE
     Indication: Breast cancer
     Dosage: 25 MG, 1X/DAY
     Route: 048
     Dates: start: 20090921
  2. EXEMESTANE [Suspect]
     Active Substance: EXEMESTANE
     Dosage: 25 MG, 1X/DAY
     Route: 048
     Dates: start: 20150328
  3. EXEMESTANE [Suspect]
     Active Substance: EXEMESTANE
     Dosage: 25 MG, 1X/DAY
     Route: 048
     Dates: start: 20151021
  4. EXEMESTANE [Suspect]
     Active Substance: EXEMESTANE
     Dosage: 1 DF, DAILY
     Route: 048
     Dates: start: 201607, end: 20160921
  5. EXEMESTANE [Suspect]
     Active Substance: EXEMESTANE
     Dosage: 25 MG, 1X/DAY
     Route: 048
  6. NAVELBINE [Suspect]
     Active Substance: VINORELBINE TARTRATE
     Indication: Breast cancer
     Dosage: 100 MG, DAILY
     Route: 048
     Dates: start: 20161028, end: 20161028
  7. NAVELBINE [Suspect]
     Active Substance: VINORELBINE TARTRATE
     Dosage: 100 MILLIGRAM, DAILY, 100 MG, QD (1/DAY)
     Route: 048
     Dates: start: 20161111
  8. NAVELBINE [Suspect]
     Active Substance: VINORELBINE TARTRATE
     Dosage: 100 MG, DAILY
     Route: 048
     Dates: start: 20160901, end: 20160930
  9. TAXOTERE [Suspect]
     Active Substance: DOCETAXEL
     Indication: Breast cancer
     Dosage: 130 MG, EVERY 3 WEEKS
     Route: 042
     Dates: start: 20150507, end: 20150903
  10. XELODA [Suspect]
     Active Substance: CAPECITABINE
     Indication: Breast cancer
     Dosage: 1650 MG
     Route: 048
     Dates: start: 20150901
  11. XELODA [Suspect]
     Active Substance: CAPECITABINE
     Dosage: 3300 MG
     Route: 048
     Dates: start: 20160901, end: 20160914
  12. HERCEPTIN [Suspect]
     Active Substance: TRASTUZUMAB
     Indication: Breast cancer
     Dosage: 462 MG, EVERY 3 WEEKLOADING DOSE 3/WEEK (CV)
     Route: 042
     Dates: start: 20150506, end: 20150506
  13. HERCEPTIN [Suspect]
     Active Substance: TRASTUZUMAB
     Dosage: 357 MG, EVERY 3 WEEKS
     Route: 042
     Dates: start: 20150527, end: 20160630
  14. HERCEPTIN [Suspect]
     Active Substance: TRASTUZUMAB
     Dosage: 357 MG EVERY 3 WEEKS
     Route: 042
     Dates: start: 20170620
  15. PERTUZUMAB [Suspect]
     Active Substance: PERTUZUMAB
     Indication: Breast cancer
     Dosage: 2520 MILLIGRAM, WEEKLY, LOADING DOSE
     Route: 042
     Dates: start: 20150507, end: 20150507
  16. PERTUZUMAB [Suspect]
     Active Substance: PERTUZUMAB
     Dosage: 420 MG, EVERY 3 WEEKS
     Route: 042
     Dates: start: 20150527, end: 20160630
  17. PERTUZUMAB [Suspect]
     Active Substance: PERTUZUMAB
     Dosage: 840 MG, EVERY 3 WEEKS LOADING DOSE
     Route: 042
     Dates: start: 20150507, end: 20150507
  18. PERTUZUMAB [Suspect]
     Active Substance: PERTUZUMAB
     Dosage: 2520 MG, EVERY 3 WEEKS LOADING DOSE
     Route: 042
     Dates: start: 20150507, end: 20150507
  19. VINORELBINE [Suspect]
     Active Substance: VINORELBINE TARTRATE
     Indication: Breast cancer
     Dosage: 100 MG, 1X/DAY
     Route: 048
     Dates: start: 20160901, end: 20160930
  20. VINORELBINE [Suspect]
     Active Substance: VINORELBINE TARTRATE
     Dosage: 100 MG, DAILY
     Route: 048
     Dates: start: 20161111
  21. VINORELBINE [Suspect]
     Active Substance: VINORELBINE TARTRATE
     Dosage: 100 MG, 1X/DAY
     Route: 048
     Dates: start: 20161028, end: 20161028
  22. ANASTROZOLE [Suspect]
     Active Substance: ANASTROZOLE
     Indication: Breast cancer
     Dosage: 1 MG, 1X/DAY
     Route: 048
     Dates: start: 20151021, end: 20171027
  23. ANASTROZOLE [Suspect]
     Active Substance: ANASTROZOLE
     Dosage: 1 MG, 1X/DAY
     Route: 048
  24. ADO-TRASTUZUMAB EMTANSINE [Suspect]
     Active Substance: ADO-TRASTUZUMAB EMTANSINE
     Indication: Breast cancer
     Dosage: 462 MG, WEEKLY
     Route: 042
     Dates: start: 20150506, end: 20150506
  25. ADO-TRASTUZUMAB EMTANSINE [Suspect]
     Active Substance: ADO-TRASTUZUMAB EMTANSINE
     Dosage: 357 MG, WEEKLY
     Route: 042
     Dates: start: 20150527, end: 20160630
  26. ADO-TRASTUZUMAB EMTANSINE [Suspect]
     Active Substance: ADO-TRASTUZUMAB EMTANSINE
     Dosage: 224 MG EVERY 3 WEEKS
     Route: 042
     Dates: start: 20170120, end: 20170830
  27. LANSOPRAZOLE [Concomitant]
     Active Substance: LANSOPRAZOLE
     Indication: Prophylaxis
     Dosage: UNK, UNKNOWN
     Route: 048
     Dates: start: 20150504, end: 20171027
  28. LANSOPRAZOLE [Concomitant]
     Active Substance: LANSOPRAZOLE
     Indication: Prophylaxis
  29. RAMIPRIL [Concomitant]
     Active Substance: RAMIPRIL
     Indication: Palpitations
     Dosage: 5 MILLIGRAM, DAILY, 5 MG, QD (1/DAY)
     Route: 048
     Dates: start: 20160308, end: 20160602
  30. RAMIPRIL [Concomitant]
     Active Substance: RAMIPRIL
     Indication: Cough
     Dosage: 435 MILLIGRAM, UNK
     Route: 048
  31. DEXAMETHASONE [Concomitant]
     Active Substance: DEXAMETHASONE
     Indication: Premedication
     Dosage: 2 MG
     Route: 048
     Dates: start: 20150504, end: 20150904
  32. DEXAMETHASONE [Concomitant]
     Active Substance: DEXAMETHASONE
     Dosage: UNK UNK, 1X/DAY
     Route: 048
     Dates: start: 20160713, end: 201607
  33. DEXAMETHASONE [Concomitant]
     Active Substance: DEXAMETHASONE
     Dosage: 8 MG, 1X/DAY
     Route: 048
     Dates: start: 20161130, end: 20161201
  34. DEXAMETHASONE [Concomitant]
     Active Substance: DEXAMETHASONE
     Dosage: 1 DF, 1X/DAY
     Route: 048
     Dates: start: 201607, end: 20160921
  35. DEXAMETHASONE [Concomitant]
     Active Substance: DEXAMETHASONE
     Dosage: 1 DF, QD (1/DAY)
     Route: 048
     Dates: start: 20161004, end: 20161123
  36. DEXAMETHASONE [Concomitant]
     Active Substance: DEXAMETHASONE
     Dosage: 1 DF, QD (1/DAY)
     Route: 048
     Dates: start: 201612, end: 20170510
  37. DEXAMETHASONE [Concomitant]
     Active Substance: DEXAMETHASONE
     Dosage: 1 DF, 1X/DAY
     Route: 048
     Dates: start: 20161123, end: 20161130
  38. DEXAMETHASONE [Concomitant]
     Active Substance: DEXAMETHASONE
     Dosage: 1 DF, 1X/DAY
     Route: 048
     Dates: start: 20150506, end: 20150717
  39. DEXAMETHASONE [Concomitant]
     Active Substance: DEXAMETHASONE
     Dosage: 1 DF, 1X/DAY
     Route: 048
     Dates: start: 20170216, end: 20170830
  40. DEXAMETHASONE [Concomitant]
     Active Substance: DEXAMETHASONE
     Dosage: 2 MG, 1X/DAY
     Route: 048
     Dates: start: 201612, end: 201612
  41. DEXAMETHASONE [Concomitant]
     Active Substance: DEXAMETHASONE
     Dosage: 1 DF, 1X/DAY
     Route: 048
     Dates: start: 20160713, end: 201607
  42. DEXAMETHASONE [Concomitant]
     Active Substance: DEXAMETHASONE
     Dosage: 2 MG, 1X/DAY
     Route: 048
     Dates: start: 201612, end: 20170510
  43. DEXAMETHASONE [Concomitant]
     Active Substance: DEXAMETHASONE
     Dosage: 1 DF
     Route: 048
     Dates: start: 20160713
  44. CODEINE [Concomitant]
     Active Substance: CODEINE
     Indication: Product used for unknown indication
     Dosage: UNK
     Route: 048
     Dates: start: 20150603, end: 20150715
  45. CODEINE [Concomitant]
     Active Substance: CODEINE
     Indication: Diarrhoea
     Dosage: UNK
  46. AMITRIPTYLINE [Concomitant]
     Active Substance: AMITRIPTYLINE
     Indication: Product used for unknown indication
     Dosage: 10 MG, DAILY
     Route: 048
     Dates: start: 201603
  47. LEVETIRACETAM [Concomitant]
     Active Substance: LEVETIRACETAM
     Indication: Epilepsy
     Dosage: 250 MG
     Route: 048
     Dates: start: 20160727, end: 20171027
  48. LEVETIRACETAM [Concomitant]
     Active Substance: LEVETIRACETAM
     Indication: Muscle twitching
     Dosage: 1 DF, EVERY 12 HOURS
     Route: 048
     Dates: start: 20160811, end: 20161027
  49. LEVETIRACETAM [Concomitant]
     Active Substance: LEVETIRACETAM
     Dosage: BID (2/DAY)
     Route: 048
     Dates: start: 20160727, end: 20160810
  50. METOCLOPRAMIDE [Concomitant]
     Active Substance: METOCLOPRAMIDE
     Indication: Product used for unknown indication
     Dosage: 2 DF, 1X/DAY
     Route: 048
     Dates: start: 20170815, end: 2017
  51. METOCLOPRAMIDE [Concomitant]
     Active Substance: METOCLOPRAMIDE
     Indication: Product used for unknown indication
     Dosage: UNK, SUBSEQUENT DOSE RECEIVED ON 18/NOV/2016
     Route: 048
     Dates: start: 20150506, end: 2016
  52. METOCLOPRAMIDE [Concomitant]
     Active Substance: METOCLOPRAMIDE
     Dosage: 2 DF, 1X/DAYSUBSEQUENT DOSE RECEIVED ON 18/NOV/2016
     Route: 048
     Dates: start: 20170301, end: 2017
  53. METOCLOPRAMIDE [Concomitant]
     Active Substance: METOCLOPRAMIDE
     Dosage: 2 DF, 1X/DAY
     Route: 048
     Dates: start: 20170815, end: 2017
  54. METOCLOPRAMIDE [Concomitant]
     Active Substance: METOCLOPRAMIDE
     Dosage: UNK
     Route: 048
     Dates: start: 20170815, end: 2017
  55. METOCLOPRAMIDE [Concomitant]
     Active Substance: METOCLOPRAMIDE
     Dates: start: 20150506, end: 20150903
  56. METOCLOPRAMIDE [Concomitant]
     Active Substance: METOCLOPRAMIDE
     Dosage: BID
     Route: 042
     Dates: start: 20150506, end: 20150903
  57. LACTULOSE [Concomitant]
     Active Substance: LACTULOSE
     Indication: Constipation
     Dosage: UNK
     Route: 048
     Dates: start: 20161221, end: 20171021
  58. LACTULOSE [Concomitant]
     Active Substance: LACTULOSE
     Indication: Neuralgia
     Dosage: UNK
     Route: 048
     Dates: start: 201603, end: 20171021
  59. LACTULOSE [Concomitant]
     Active Substance: LACTULOSE
     Indication: Neuralgia
     Dosage: UNK
     Route: 048
  60. LACTULOSE [Concomitant]
     Active Substance: LACTULOSE
     Dosage: UNK
     Route: 048
  61. BISOPROLOL [Concomitant]
     Active Substance: BISOPROLOL
     Indication: Palpitations
     Dosage: UNK
     Route: 048
     Dates: start: 20160602, end: 20171027
  62. SPIRONOLACTONE [Concomitant]
     Active Substance: SPIRONOLACTONE
     Indication: Palpitations
     Dosage: UNK
     Route: 048
     Dates: start: 20160602, end: 20171027
  63. COCODAMOL [Concomitant]
     Active Substance: ACETAMINOPHEN\CODEINE PHOSPHATE
     Indication: Headache
     Dosage: UNK
     Route: 048
     Dates: start: 20160929, end: 20171027
  64. FLUCONAZOLE [Concomitant]
     Active Substance: FLUCONAZOLE
     Indication: Product used for unknown indication
     Dosage: UNK
     Route: 048
     Dates: start: 20171004, end: 20171004
  65. PEGFILGRASTIM [Concomitant]
     Active Substance: PEGFILGRASTIM
     Indication: Product used for unknown indication
     Dosage: UNK
     Route: 058
     Dates: start: 20150506, end: 20150903
  66. ONDANSETRON [Concomitant]
     Active Substance: ONDANSETRON
     Indication: Product used for unknown indication
     Dosage: UNK, UNKNOWN
     Route: 048
     Dates: start: 20161111, end: 2016
  67. ONDANSETRON [Concomitant]
     Active Substance: ONDANSETRON
     Dosage: UNK
     Route: 048
     Dates: start: 20150508, end: 20150904
  68. AMOXICILLIN [Concomitant]
     Active Substance: AMOXICILLIN
     Indication: Oropharyngeal pain
     Dosage: (3 DF, TID (3/DAY) )
     Route: 048
     Dates: start: 20151104, end: 20151111
  69. CALCIUM GLUCONATE [Concomitant]
     Active Substance: CALCIUM GLUCONATE
     Indication: Product used for unknown indication
     Dosage: UNK
     Dates: end: 20170201
  70. CALCIUM GLUCONATE [Concomitant]
     Active Substance: CALCIUM GLUCONATE
     Indication: Product used for unknown indication
  71. BECLOMETHASONE DIPROPIONATE [Concomitant]
     Active Substance: BECLOMETHASONE DIPROPIONATE
     Indication: Wheezing
     Dosage: UNK
     Route: 050
     Dates: end: 20160108
  72. LOSARTAN [Concomitant]
     Active Substance: LOSARTAN
     Indication: Palpitations
     Dosage: 50 MG
     Route: 048
     Dates: start: 20160602, end: 20171027
  73. LOSARTAN [Concomitant]
     Active Substance: LOSARTAN
     Dosage: 50 MG
     Route: 048
  74. CALCIUM CARBONATE\CHOLECALCIFEROL [Concomitant]
     Active Substance: CALCIUM CARBONATE\CHOLECALCIFEROL
     Indication: Product used for unknown indication
     Dosage: UNK
     Route: 048
     Dates: end: 20171027
  75. ACETAMINOPHEN [Concomitant]
     Active Substance: ACETAMINOPHEN
     Indication: Headache
     Dosage: UNK
     Route: 048
     Dates: start: 20160629, end: 20171027
  76. KEPPRA [Concomitant]
     Active Substance: LEVETIRACETAM
     Indication: Muscle twitching
     Dosage: UNK UNK, BID  (EVERY 0.5 DAY)
     Route: 048
     Dates: start: 20160811, end: 20161027
  77. KEPPRA [Concomitant]
     Active Substance: LEVETIRACETAM
     Dosage: UNK UNK, 2X/DAY (EVERY 0.5 DAY)
     Route: 048
     Dates: start: 20160727, end: 20160810
  78. TRIMETHOPRIM [Concomitant]
     Active Substance: TRIMETHOPRIM
     Indication: Urinary tract infection
     Dosage: UNK
     Route: 048
     Dates: start: 20170209, end: 20170216
  79. IBUPROFEN [Concomitant]
     Active Substance: IBUPROFEN
     Indication: Headache
     Dosage: 1 DF, 1X/DAY ( 1 TABLET)
     Route: 048
     Dates: start: 20170201
  80. NITROFURANTOIN [Concomitant]
     Active Substance: NITROFURANTOIN
     Indication: Product used for unknown indication
     Dosage: UNK
     Dates: start: 20170621, end: 20170623
  81. NITROFURANTOIN [Concomitant]
     Active Substance: NITROFURANTOIN
     Indication: Product used for unknown indication
  82. VENTOLIN [Concomitant]
     Active Substance: ALBUTEROL SULFATE
     Indication: Wheezing
     Dosage: UNK
     Dates: start: 20170621, end: 2017
  83. QUININE SULFATE [Concomitant]
     Active Substance: QUININE SULFATE
     Indication: Muscle spasms
     Dosage: 200 MG
     Route: 048
     Dates: start: 20161123, end: 20171027
  84. APREPITANT [Concomitant]
     Active Substance: APREPITANT
     Indication: Prophylaxis
     Dosage: UNK
     Dates: start: 20150527, end: 20150905
  85. APREPITANT [Concomitant]
     Active Substance: APREPITANT
     Indication: Prophylaxis
  86. CYCLIZINE [Concomitant]
     Active Substance: CYCLIZINE
     Indication: Prophylaxis
     Dosage: 150 MG, DAILY
     Route: 048
     Dates: start: 20150603, end: 20150715
  87. CYCLIZINE [Concomitant]
     Active Substance: CYCLIZINE
     Dosage: 50 MG
     Route: 048
     Dates: start: 20150603
  88. CALAMINE [Concomitant]
     Active Substance: CALAMINE\FERRIC OXIDE RED\ZINC OXIDE
     Indication: Product used for unknown indication
     Dosage: PRN 1 APPLICATION, AS NEEDED
     Route: 061
     Dates: start: 20150915
  89. CALAMINE [Concomitant]
     Active Substance: CALAMINE\FERRIC OXIDE RED\ZINC OXIDE
     Indication: Product used for unknown indication
  90. CODEINE PHOSPHATE [Concomitant]
     Active Substance: CODEINE PHOSPHATE
     Indication: Product used for unknown indication
     Dosage: 60 MILLIGRAM, QD (QDS AS NEEDED)
     Route: 048
     Dates: start: 20150603
  91. CODEINE PHOSPHATE [Concomitant]
     Active Substance: CODEINE PHOSPHATE
     Indication: Product used for unknown indication
     Dosage: 60 MILLIGRAM, QD (QDS AS NEEDED)
     Route: 048
     Dates: start: 20150603
  92. CHLORHEXIDINE GLUCONATE [Concomitant]
     Active Substance: CHLORHEXIDINE GLUCONATE
     Indication: Mucosal inflammation
     Dosage: UNK, PRN 1 MOUTH WASH AS NEEDED ()
     Route: 048
     Dates: start: 20150514, end: 20150715
  93. CHLORHEXIDINE GLUCONATE [Concomitant]
     Active Substance: CHLORHEXIDINE GLUCONATE
     Indication: Mucosal inflammation
  94. FLUCLOXACILLIN [Concomitant]
     Active Substance: FLUCLOXACILLIN
     Indication: Nail infection
     Dosage: 250 MILLIGRAM, TID
     Route: 048
     Dates: start: 20150603, end: 20150610
  95. FLUCLOXACILLIN [Concomitant]
     Active Substance: FLUCLOXACILLIN
     Dosage: 750 MG, DAILY
     Route: 048
  96. FLUCLOXACILLIN [Concomitant]
     Active Substance: FLUCLOXACILLIN
     Route: 048
  97. HYDROCORTISONE [Concomitant]
     Active Substance: HYDROCORTISONE
     Indication: Rash
     Dosage: LOTION APPLICATION
     Route: 061
  98. CHLORPHENIRAMINE MALEATE [Concomitant]
     Active Substance: CHLORPHENIRAMINE MALEATE
     Indication: Rash
     Dosage: 5 MILLIGRAM, PRN
     Route: 048
     Dates: start: 20150725
  99. CHLORPHENIRAMINE MALEATE [Concomitant]
     Active Substance: CHLORPHENIRAMINE MALEATE
     Dosage: 5 MG
     Dates: start: 20150725
  100. CHLORPHENIRAMINE MALEATE [Concomitant]
     Active Substance: CHLORPHENIRAMINE MALEATE
     Dosage: 5 MILLIGRAM, PRN
     Route: 048
     Dates: start: 20150725
  101. CASSIA ACUTIFOLIA [Concomitant]
     Indication: Constipation
     Dosage: UNK
     Route: 048
     Dates: start: 20161221, end: 20170327
  102. SENNA LEAF [Concomitant]
     Active Substance: SENNA LEAF
     Indication: Constipation
     Dosage: UNK
     Route: 048
     Dates: start: 20161221, end: 20170327
  103. ARIMIDEX [Concomitant]
     Active Substance: ANASTROZOLE
  104. AROMASIN [Concomitant]
     Active Substance: EXEMESTANE
  105. GELCLAIR [Concomitant]
     Dosage: UNK UNK, 1X/DAY
     Route: 048
     Dates: start: 20150514, end: 20150514

REACTIONS (33)
  - Nail disorder [Recovered/Resolved]
  - Nausea [Recovered/Resolved]
  - Headache [Recovered/Resolved]
  - Abdominal pain [Unknown]
  - Diarrhoea [Recovered/Resolved]
  - Alopecia [Unknown]
  - Rash [Recovered/Resolved]
  - Mucosal inflammation [Unknown]
  - Poor peripheral circulation [Unknown]
  - Neuropathy peripheral [Not Recovered/Not Resolved]
  - Lacrimation increased [Not Recovered/Not Resolved]
  - Viral upper respiratory tract infection [Recovered/Resolved]
  - Seizure [Unknown]
  - Left ventricular dysfunction [Not Recovered/Not Resolved]
  - Palpitations [Not Recovered/Not Resolved]
  - Neuralgia [Not Recovered/Not Resolved]
  - Depressed mood [Not Recovered/Not Resolved]
  - Dizziness [Unknown]
  - Weight decreased [Unknown]
  - Nausea [Recovered/Resolved]
  - Nail infection [Recovered/Resolved]
  - Muscle spasms [Unknown]
  - Muscle twitching [Unknown]
  - Hiccups [Not Recovered/Not Resolved]
  - Vaginal discharge [Recovered/Resolved]
  - Constipation [Recovered/Resolved]
  - Chest pain [Recovered/Resolved]
  - Urinary tract infection [Recovered/Resolved]
  - Cough [Recovered/Resolved]
  - Oropharyngeal pain [Recovered/Resolved]
  - Fatigue [Not Recovered/Not Resolved]
  - Neuropathy peripheral [Not Recovered/Not Resolved]
  - Headache [Recovered/Resolved]

NARRATIVE: CASE EVENT DATE: 20150508
